FAERS Safety Report 9701302 (Version 1)
Quarter: 2013Q4

REPORT INFORMATION
  Report Type: Spontaneous
  Country: US (occurrence: US)
  Receive Date: 20131121
  Receipt Date: 20131121
  Transmission Date: 20140711
  Serious: No
  Sender: FDA-Public Use
  Company Number: US-GILEAD-2008-0016264

PATIENT
  Age: 85 Year
  Sex: Female

DRUGS (13)
  1. LETAIRIS [Suspect]
     Indication: PULMONARY ARTERIAL HYPERTENSION
     Route: 048
     Dates: start: 20080403, end: 20080406
  2. COUMADIN [Concomitant]
  3. REVATIO [Concomitant]
  4. FUROSEMIDE [Concomitant]
  5. LOTREL [Concomitant]
  6. SYNTHROID [Concomitant]
  7. PREDNISONE [Concomitant]
  8. IMURAN [Concomitant]
  9. ACIPHEX [Concomitant]
  10. BONIVA [Concomitant]
  11. OSCAL 500+D [Concomitant]
  12. ACULAR PF OPHTHALMIC SOLUTION [Concomitant]
     Route: 047
  13. XALANTAN OPH SOLN [Concomitant]
     Route: 047

REACTIONS (2)
  - Fatigue [Recovered/Resolved]
  - Fluid retention [Recovered/Resolved]
